FAERS Safety Report 9835417 (Version 2)
Quarter: 2014Q1

REPORT INFORMATION
  Report Type: Spontaneous
  Country: US (occurrence: US)
  Receive Date: 20140122
  Receipt Date: 20140326
  Transmission Date: 20141002
  Serious: No
  Sender: FDA-Public Use
  Company Number: US-TEVA-457601USA

PATIENT
  Age: 19 Year
  Sex: Female
  Weight: 63.56 kg

DRUGS (6)
  1. PLAN B ONE-STEP [Suspect]
     Indication: POST COITAL CONTRACEPTION
     Dosage: 1.5 MILLIGRAM DAILY;
     Route: 048
     Dates: start: 20140107, end: 20140107
  2. YASMIN [Concomitant]
     Indication: CONTRACEPTION
     Route: 048
  3. ADVAIR [Concomitant]
     Indication: ASTHMA
  4. FLUOXETINE [Concomitant]
     Indication: DEPRESSION
     Dosage: 40 MILLIGRAM DAILY;
     Route: 048
  5. ALBUTEROL [Concomitant]
     Indication: ASTHMA
  6. ZYRTEC [Concomitant]
     Indication: HYPERSENSITIVITY

REACTIONS (4)
  - Back pain [Recovered/Resolved]
  - Menstruation irregular [Recovered/Resolved]
  - Pelvic pain [Recovered/Resolved]
  - Nausea [Recovered/Resolved]
